FAERS Safety Report 9154823 (Version 2)
Quarter: 2013Q1

REPORT INFORMATION
  Report Type: Spontaneous
  Country: US (occurrence: None)
  Receive Date: 20130208
  Receipt Date: 20130213
  Transmission Date: 20140127
  Serious: Yes (Other)
  Sender: FDA-Public Use
  Company Number: JPI-P-029578

PATIENT
  Age: 46 Year
  Sex: Female
  Weight: 54.43 kg

DRUGS (6)
  1. XYREM [Suspect]
     Indication: NARCOLEPSY
     Dosage: 4.5 GM (2.25 GM, 2 IN 1 D), ORAL
     Route: 048
     Dates: start: 20130226
  2. AMPHETAMINE, DEXTROAMPHETAMINE MIXED SALTS [Concomitant]
  3. LAMOTRIGINE [Concomitant]
  4. BUPROPION HYDROCHLORIDE [Concomitant]
  5. LORAZEPAM [Concomitant]
  6. METOPROLOL [Concomitant]

REACTIONS (2)
  - Nephrolithiasis [None]
  - Renal stone removal [None]
